FAERS Safety Report 24981205 (Version 1)
Quarter: 2025Q1

REPORT INFORMATION
  Report Type: Spontaneous
  Country: FR (occurrence: None)
  Receive Date: 20250218
  Receipt Date: 20250218
  Transmission Date: 20250408
  Serious: Yes (Disabling)
  Sender: ORION
  Company Number: None

PATIENT
  Age: 50 Year
  Sex: Female
  Weight: 51 kg

DRUGS (5)
  1. METHOTREXATE [Suspect]
     Active Substance: METHOTREXATE
     Indication: Product used for unknown indication
     Dates: start: 20231030, end: 20240213
  2. METHOTREXATE [Suspect]
     Active Substance: METHOTREXATE
     Dates: start: 20240213
  3. QUTENZA [Concomitant]
     Active Substance: CAPSAICIN
  4. LIDOCAINE [Concomitant]
     Active Substance: LIDOCAINE
  5. BISOPROLOL FUMARATE [Concomitant]
     Active Substance: BISOPROLOL FUMARATE

REACTIONS (1)
  - Tooth loss [Recovering/Resolving]

NARRATIVE: CASE EVENT DATE: 20231101
